FAERS Safety Report 6378103-4 (Version None)
Quarter: 2009Q3

REPORT INFORMATION
  Report Type: 
  Country: None (occurrence: None)
  Receive Date: 20090925
  Receipt Date: 20090922
  Transmission Date: 20100115
  Serious: Yes (Hospitalization)
  Sender: FDA-Public Use
  Company Number: US-RB-020777-09

PATIENT
  Age: 57 Year
  Sex: Female

DRUGS (2)
  1. SUBUTEX [Suspect]
     Indication: DRUG USE FOR UNKNOWN INDICATION
     Dosage: DOSAGE INFORMATION UNKNOWN
     Route: 065
     Dates: start: 20080101, end: 20090101
  2. SUBUTEX [Suspect]
     Dosage: WEANED DOSE TO 1 MG DAILY SINCE HOSPITALIZATION
     Route: 065
     Dates: start: 20090101

REACTIONS (6)
  - DRUG WITHDRAWAL SYNDROME [None]
  - HYPERTENSION [None]
  - NERVOUSNESS [None]
  - PNEUMONIA [None]
  - TEETH BRITTLE [None]
  - TOOTH LOSS [None]
